FAERS Safety Report 7241923-8 (Version None)
Quarter: 2011Q1

REPORT INFORMATION
  Report Type: 
  Country: None (occurrence: None)
  Receive Date: 20110124
  Receipt Date: 20110119
  Transmission Date: 20110831
  Serious: Yes (Other)
  Sender: FDA-Public Use
  Company Number: KR-PFIZER INC-2011013599

PATIENT
  Age: 75 Year
  Sex: Female

DRUGS (1)
  1. HALCION [Suspect]
     Dosage: 0.125 MG, UNK
     Route: 048

REACTIONS (2)
  - HYPERSOMNIA [None]
  - CONVULSION [None]
